FAERS Safety Report 12415540 (Version 2)
Quarter: 2016Q2

REPORT INFORMATION
  Report Type: Spontaneous
  Country: US (occurrence: US)
  Receive Date: 20160530
  Receipt Date: 20160629
  Transmission Date: 20160815
  Serious: No
  Sender: FDA-Public Use
  Company Number: US-PFIZER INC-2016267192

PATIENT
  Age: 39 Year
  Sex: Male
  Weight: 71 kg

DRUGS (35)
  1. PROPRANOLOL [Concomitant]
     Active Substance: PROPRANOLOL\PROPRANOLOL HYDROCHLORIDE
     Dosage: 5 MG, DAILY (10 MG TABLET-TAKE 0.5 MG TABLET(S) EVERY DAY )
     Route: 048
  2. VALACYCLOVIR [Concomitant]
     Active Substance: VALACYCLOVIR HYDROCHLORIDE
     Indication: VARICELLA
     Dosage: 1 G, UNK
  3. CIPRO [Concomitant]
     Active Substance: CIPROFLOXACIN HYDROCHLORIDE
  4. NORTHERA [Concomitant]
     Active Substance: DROXIDOPA
     Dosage: 2 CAPULSE, 3X/DAY
     Route: 048
  5. XIFAXAN [Concomitant]
     Active Substance: RIFAXIMIN
  6. NEOMYCIN [Suspect]
     Active Substance: NEOMYCIN
  7. LYRICA [Suspect]
     Active Substance: PREGABALIN
     Indication: PAIN
     Dosage: 300 MG, 2X/DAY (TAKE 1 CAPSULE(S) TWICE A DAY)
     Route: 048
  8. ZOLPIDEM [Concomitant]
     Active Substance: ZOLPIDEM\ZOLPIDEM TARTRATE
     Dosage: 20 MG, DAILY (10 MG TABLET; TAKE 2 TABLET(S) EVERY DAY)
     Route: 048
  9. PREDNISONE. [Concomitant]
     Active Substance: PREDNISONE
     Dosage: 40 MG, DAILY (TAKE 2 TABLET (20 MG) EVERY DAY)
     Route: 048
  10. OXYCONTIN [Concomitant]
     Active Substance: OXYCODONE HYDROCHLORIDE
     Dosage: 15 MG, 2X/DAY (TAKE 1 TABLET(S) EVERY 12 HOURS )
     Route: 048
  11. ZOLPIDEM [Concomitant]
     Active Substance: ZOLPIDEM\ZOLPIDEM TARTRATE
     Dosage: 10 MG, DAILY (5 MG TABLET; TAKE 2 TABLET(S) EVERY DAY)
     Route: 048
  12. PYRIDOSTIGMINE BROMIDE. [Concomitant]
     Active Substance: PYRIDOSTIGMINE BROMIDE
     Indication: MUSCULAR WEAKNESS
     Dosage: 60 MG, 4X/DAY (60 MG TABLET. TAKE 1 TAB EVERY 6 HOURS)
     Route: 048
  13. MESTINON [Concomitant]
     Active Substance: PYRIDOSTIGMINE BROMIDE
     Dosage: 60 MG, 3X/DAY
     Route: 048
  14. LYRICA [Suspect]
     Active Substance: PREGABALIN
     Indication: NEURALGIA
     Dosage: 300 MG, DAILY
     Route: 048
  15. LINZESS [Concomitant]
     Active Substance: LINACLOTIDE
     Dosage: 145 UG, DAILY (1 CAPSULE(S) EVERY DAY)
     Route: 048
  16. ZOLPIDEM [Concomitant]
     Active Substance: ZOLPIDEM\ZOLPIDEM TARTRATE
     Dosage: 5 MG, DAILY
     Route: 048
  17. DESMOPRESSIN [Concomitant]
     Active Substance: DESMOPRESSIN
     Dosage: 0.1 MG, 2X/DAY
     Route: 048
  18. ACYCLOVIR. [Concomitant]
     Active Substance: ACYCLOVIR
     Dosage: 800 MG, UNK
  19. CAPSAICIN. [Concomitant]
     Active Substance: CAPSAICIN
     Dosage: 0.025 %, 3X/DAY
     Route: 061
  20. RITUXAN [Concomitant]
     Active Substance: RITUXIMAB
     Dosage: 2 DOSES GIVEN
  21. LYRICA [Suspect]
     Active Substance: PREGABALIN
     Dosage: 50 MG, DAILY
     Route: 048
  22. HYDROMORPHONE [Concomitant]
     Active Substance: HYDROMORPHONE
     Dosage: 8 MG, 4X/DAY (TAKE 1 TABLET(S) EVERY 6 HOURS)
     Route: 048
  23. ROZEREM [Concomitant]
     Active Substance: RAMELTEON
     Indication: INSOMNIA
     Dosage: 8 MG, DAILY (TAKE 1 TABLET (S) EVERY DAY )
     Route: 048
  24. PROPRANOLOL [Concomitant]
     Active Substance: PROPRANOLOL\PROPRANOLOL HYDROCHLORIDE
     Dosage: 10 MG, UNK
  25. NEOMYCIN [Concomitant]
     Active Substance: NEOMYCIN
     Dosage: 500 MG, UNK
  26. VALTREX [Concomitant]
     Active Substance: VALACYCLOVIR HYDROCHLORIDE
  27. LYRICA [Suspect]
     Active Substance: PREGABALIN
     Indication: ORTHOSTATIC INTOLERANCE
     Dosage: 375 MG, DAILY
  28. LYRICA [Suspect]
     Active Substance: PREGABALIN
     Dosage: 225 MG, DAILY (75 MG CAPSULE, TAKE 3 CAPSULE(S) EVERY DAY)
     Route: 048
  29. LYRICA [Suspect]
     Active Substance: PREGABALIN
     Dosage: 650 MG, DAILY
  30. LYRICA [Suspect]
     Active Substance: PREGABALIN
     Dosage: 150 MG, 2X/DAY
  31. NIMODIPINE. [Concomitant]
     Active Substance: NIMODIPINE
     Dosage: 30 MG, 4X/DAY (TAKE 1 CAPSULE(S) EVERY 6 HOURS)
     Route: 048
  32. ZOLPIDEM [Concomitant]
     Active Substance: ZOLPIDEM\ZOLPIDEM TARTRATE
     Dosage: 10 MG, DAILY (10 MG TABLET-TAKE 1 TABLET(S) EVERY DAY)
     Route: 048
  33. ZOLPIDEM [Concomitant]
     Active Substance: ZOLPIDEM\ZOLPIDEM TARTRATE
     Dosage: 20 MG, 2X/DAY (05 MG TABLET: TAKE 2 TABLET (S) TWICE A DAY)
     Route: 048
  34. SONATA [Concomitant]
     Active Substance: ZALEPLON
     Dosage: 10 MG, DAILY (5 MG CAPSULE, TAKE 2 CAPSULE (S) EVERY DAY )
     Route: 048
  35. PREDNISONE. [Concomitant]
     Active Substance: PREDNISONE
     Dosage: 20 MG

REACTIONS (16)
  - Prescribed overdose [Unknown]
  - Nasal congestion [Unknown]
  - Oropharyngeal pain [Unknown]
  - Glycosylated haemoglobin increased [Unknown]
  - Blood glucose increased [Unknown]
  - Thinking abnormal [Unknown]
  - Pain [Unknown]
  - Alanine aminotransferase increased [Unknown]
  - Dysbacteriosis [Unknown]
  - Diarrhoea [Unknown]
  - Dysuria [Unknown]
  - Red cell distribution width increased [Unknown]
  - Drug ineffective [Unknown]
  - Viral infection [Unknown]
  - Muscle spasms [Unknown]
  - Photophobia [Unknown]
